FAERS Safety Report 5721802-5 (Version None)
Quarter: 2008Q2

REPORT INFORMATION
  Report Type: 
  Country: None (occurrence: None)
  Receive Date: 20080429
  Receipt Date: 20070410
  Transmission Date: 20081010
  Serious: No
  Sender: FDA-Public Use
  Company Number: US-ASTRAZENECA-2007UW07082

PATIENT
  Sex: Female

DRUGS (3)
  1. NEXIUM [Suspect]
     Indication: ABDOMINAL DISCOMFORT
     Route: 048
     Dates: start: 20070301
  2. NEXIUM [Suspect]
     Indication: FLATULENCE
     Route: 048
     Dates: start: 20070301
  3. AMBIEN [Concomitant]

REACTIONS (2)
  - ORAL DISCOMFORT [None]
  - THROAT IRRITATION [None]
